FAERS Safety Report 17400584 (Version 1)
Quarter: 2020Q1

REPORT INFORMATION
  Report Type: Spontaneous
  Country: US (occurrence: US)
  Receive Date: 20200211
  Receipt Date: 20200211
  Transmission Date: 20200409
  Serious: No
  Sender: FDA-Public Use
  Company Number: US-JNJFOC-20200151012

PATIENT
  Age: 80 Year

DRUGS (3)
  1. ZYRTEC [Suspect]
     Active Substance: CETIRIZINE HYDROCHLORIDE
     Indication: RASH
  2. ZYRTEC [Suspect]
     Active Substance: CETIRIZINE HYDROCHLORIDE
     Indication: SKIN BURNING SENSATION
  3. ZYRTEC [Suspect]
     Active Substance: CETIRIZINE HYDROCHLORIDE
     Indication: HYPERSENSITIVITY
     Dosage: 1 WEEK ONCE A DAY THEN TWICE A DAY ON THE 2ND WEEK AND THREE TIME FOR THE 3RD WEEK
     Route: 065

REACTIONS (4)
  - Nasal dryness [Unknown]
  - Dry throat [Unknown]
  - Off label use [Unknown]
  - Product use in unapproved indication [Unknown]
